FAERS Safety Report 8924054 (Version 1)
Quarter: 2012Q4

REPORT INFORMATION
  Report Type: 
  Country: DE (occurrence: DE)
  Receive Date: 20121126
  Receipt Date: 20121126
  Transmission Date: 20130627
  Serious: Yes (Other)
  Sender: FDA-Public Use
  Company Number: DE-BAYER-2012-119956

PATIENT
  Age: 72 Year
  Sex: Male

DRUGS (5)
  1. VARDENAFIL [Suspect]
     Dosage: 20 mg, QD
     Route: 048
     Dates: start: 20080226, end: 20080303
  2. VARDENAFIL [Suspect]
     Dosage: 20 mg, QD
     Route: 048
     Dates: start: 20080423, end: 20080429
  3. VARDENAFIL [Suspect]
     Dosage: 10 mg, QD
     Route: 048
     Dates: start: 20080514, end: 20080520
  4. PLACEBO [Suspect]
     Dosage: 20 mg, QD
     Route: 048
     Dates: start: 20080327, end: 20080402
  5. TARTARIC ACID [Suspect]
     Dosage: 100 mg, QD
     Route: 048
     Dates: start: 20080527, end: 20080529

REACTIONS (6)
  - Chronic obstructive pulmonary disease [None]
  - Bronchiectasis [None]
  - Asthenia [None]
  - Dyspnoea exertional [None]
  - Respiratory failure [None]
  - Depression [None]
